FAERS Safety Report 14317225 (Version 1)
Quarter: 2017Q4

REPORT INFORMATION
  Report Type: Spontaneous
  Country: JP (occurrence: JP)
  Receive Date: 20171222
  Receipt Date: 20171222
  Transmission Date: 20180321
  Serious: Yes (Other)
  Sender: FDA-Public Use
  Company Number: JP-ALK-ABELLO A/S-2017AA004122

PATIENT

DRUGS (2)
  1. MITICURE MITE SUBLINGUAL TABLET [Suspect]
     Active Substance: DERMATOPHAGOIDES FARINAE\DERMATOPHAGOIDES PTERONYSSINUS
     Indication: PRODUCT USED FOR UNKNOWN INDICATION
     Dosage: UNK
     Route: 060
  2. ALLERGENS EXTRACT NOS [Suspect]
     Active Substance: ALLERGENIC EXTRACTS

REACTIONS (2)
  - Benign hydatidiform mole [Unknown]
  - Pregnancy [Unknown]
